FAERS Safety Report 12649287 (Version 1)
Quarter: 2016Q3

REPORT INFORMATION
  Report Type: Report from Study
  Country: BR (occurrence: BR)
  Receive Date: 20160812
  Receipt Date: 20160812
  Transmission Date: 20161109
  Serious: Yes (Disabling, Other)
  Sender: FDA-Public Use
  Company Number: BR-ABBVIE-15K-020-1497732-00

PATIENT
  Age: 60 Year
  Sex: Female
  Weight: 79 kg

DRUGS (4)
  1. DICLOFENAC [Concomitant]
     Active Substance: DICLOFENAC
     Indication: PAIN
     Route: 048
  2. LOSARTAN. [Concomitant]
     Active Substance: LOSARTAN
     Indication: BLOOD PRESSURE ABNORMAL
     Route: 048
  3. HUMIRA [Suspect]
     Active Substance: ADALIMUMAB
     Indication: PSORIATIC ARTHROPATHY
     Route: 058
     Dates: start: 20140501, end: 20150611
  4. GLICAMIN [Concomitant]
     Indication: DIABETES MELLITUS
     Route: 048

REACTIONS (11)
  - Limb mass [Not Recovered/Not Resolved]
  - Osteoarthritis [Not Recovered/Not Resolved]
  - Skin haemorrhage [Not Recovered/Not Resolved]
  - Pruritus [Not Recovered/Not Resolved]
  - Bacterial infection [Unknown]
  - Pain [Not Recovered/Not Resolved]
  - Skin bacterial infection [Unknown]
  - Abasia [Unknown]
  - Skin injury [Not Recovered/Not Resolved]
  - Skin mass [Not Recovered/Not Resolved]
  - Body tinea [Not Recovered/Not Resolved]

NARRATIVE: CASE EVENT DATE: 201411
